FAERS Safety Report 11071854 (Version 2)
Quarter: 2015Q2

REPORT INFORMATION
  Report Type: Spontaneous
  Country: JP (occurrence: JP)
  Receive Date: 20150428
  Receipt Date: 20150519
  Transmission Date: 20150821
  Serious: Yes (Hospitalization, Other)
  Sender: FDA-Public Use
  Company Number: JP-KOWA-2015S1000198

PATIENT
  Age: 64 Year
  Sex: Female
  Weight: 53 kg

DRUGS (8)
  1. ATORVASTATIN [Suspect]
     Active Substance: ATORVASTATIN
     Indication: TYPE IIA HYPERLIPIDAEMIA
     Dosage: UNK, UNK
     Route: 048
     Dates: start: 201301, end: 201310
  2. LIVALO [Suspect]
     Active Substance: PITAVASTATIN CALCIUM
     Dosage: 4 MG, QD
     Route: 048
     Dates: start: 20140109, end: 20140404
  3. FAMOTER                            /00009201/ [Concomitant]
     Indication: ANGINA PECTORIS
     Dosage: 81 MG, QD
     Route: 048
  4. CISLECON [Concomitant]
     Indication: TYPE IIA HYPERLIPIDAEMIA
     Dosage: 600 MG, TID
     Route: 048
  5. BISOPROLOL [Concomitant]
     Active Substance: BISOPROLOL
     Indication: ANGINA PECTORIS
     Dosage: 2.5 MG, QD
     Route: 048
  6. BISOPROLOL [Concomitant]
     Active Substance: BISOPROLOL
     Indication: HYPERTENSION
  7. AMLODIPINE [Concomitant]
     Active Substance: AMLODIPINE BESYLATE
     Indication: HYPERTENSION
     Dosage: 2.5 MG, QD
     Route: 048
  8. MERCAZOLE [Concomitant]
     Active Substance: CARBIMAZOLE
     Indication: BASEDOW^S DISEASE
     Dosage: 5 MG, QD
     Route: 048

REACTIONS (2)
  - Polymyositis [Recovering/Resolving]
  - Interstitial lung disease [Recovering/Resolving]

NARRATIVE: CASE EVENT DATE: 201404
